FAERS Safety Report 8932459 (Version 2)
Quarter: 2013Q1

REPORT INFORMATION
  Report Type: Report from Study
  Country: US (occurrence: US)
  Receive Date: 20121128
  Receipt Date: 20130206
  Transmission Date: 20140127
  Serious: Yes (Death)
  Sender: FDA-Public Use
  Company Number: US-ROCHE-1158252

PATIENT
  Age: 84 Year
  Sex: Male
  Weight: 79 kg

DRUGS (6)
  1. XELODA [Suspect]
     Indication: COLON CANCER
     Route: 048
     Dates: start: 20100916, end: 20101007
  2. DIOVAN [Concomitant]
     Route: 048
  3. ADVAIR [Concomitant]
     Indication: CHRONIC OBSTRUCTIVE PULMONARY DISEASE
     Dosage: 100/50 (UNIT NOT REPORTED)
     Route: 065
  4. DOXAZOSIN [Concomitant]
     Route: 048
  5. OMEPRAZOLE [Concomitant]
     Indication: GASTROOESOPHAGEAL REFLUX DISEASE
     Route: 048
  6. AVODART [Concomitant]
     Route: 048

REACTIONS (2)
  - Death [Fatal]
  - Diarrhoea [Recovered/Resolved]
